FAERS Safety Report 21991280 (Version 3)
Quarter: 2025Q4

REPORT INFORMATION
  Report Type: Spontaneous
  Country: EU (occurrence: EU)
  Receive Date: 20230214
  Receipt Date: 20251203
  Transmission Date: 20260117
  Serious: Yes (Hospitalization, Other)
  Sender: MYLAN
  Company Number: EU-SUN PHARMACEUTICAL INDUSTRIES LTD-2023RR-375121

PATIENT
  Age: 62 Year
  Sex: Female

DRUGS (32)
  1. GEMCITABINE [Suspect]
     Active Substance: GEMCITABINE
     Indication: Pancreatic carcinoma metastatic
     Dosage: UNK UNK, Q2W (14 DAYS) (REDUCED INTENSITY)
     Route: 065
     Dates: start: 2020
  2. GEMCITABINE [Suspect]
     Active Substance: GEMCITABINE
     Indication: Ductal adenocarcinoma of pancreas
     Dosage: UNK UNK, Q2W (14 DAYS) (REDUCED INTENSITY)
     Dates: start: 2020
  3. GEMCITABINE [Suspect]
     Active Substance: GEMCITABINE
     Dosage: UNK UNK, Q2W (14 DAYS) (REDUCED INTENSITY)
     Dates: start: 2020
  4. GEMCITABINE [Suspect]
     Active Substance: GEMCITABINE
     Dosage: UNK UNK, Q2W (14 DAYS) (REDUCED INTENSITY)
     Route: 065
     Dates: start: 2020
  5. GEMCITABINE [Suspect]
     Active Substance: GEMCITABINE
     Dosage: UNK (RESTARTED)
     Route: 065
  6. GEMCITABINE [Suspect]
     Active Substance: GEMCITABINE
     Dosage: UNK (RESTARTED)
  7. GEMCITABINE [Suspect]
     Active Substance: GEMCITABINE
     Dosage: UNK (RESTARTED)
  8. GEMCITABINE [Suspect]
     Active Substance: GEMCITABINE
     Dosage: UNK (RESTARTED)
     Route: 065
  9. FLUOROURACIL [Suspect]
     Active Substance: FLUOROURACIL
     Indication: Pancreatic carcinoma metastatic
     Dosage: 2400 MILLIGRAM/SQ. METER
  10. FLUOROURACIL [Suspect]
     Active Substance: FLUOROURACIL
     Dosage: 2400 MILLIGRAM/SQ. METER
     Route: 065
  11. FLUOROURACIL [Suspect]
     Active Substance: FLUOROURACIL
     Dosage: 2400 MILLIGRAM/SQ. METER
     Route: 065
  12. FLUOROURACIL [Suspect]
     Active Substance: FLUOROURACIL
     Dosage: 2400 MILLIGRAM/SQ. METER
  13. LEUCOVORIN CALCIUM [Suspect]
     Active Substance: LEUCOVORIN CALCIUM
     Indication: Pancreatic carcinoma metastatic
     Dosage: 400 MILLIGRAM/SQ. METER
     Dates: start: 202105
  14. LEUCOVORIN CALCIUM [Suspect]
     Active Substance: LEUCOVORIN CALCIUM
     Dosage: 400 MILLIGRAM/SQ. METER
     Route: 065
     Dates: start: 202105
  15. LEUCOVORIN CALCIUM [Suspect]
     Active Substance: LEUCOVORIN CALCIUM
     Dosage: 400 MILLIGRAM/SQ. METER
     Route: 065
     Dates: start: 202105
  16. LEUCOVORIN CALCIUM [Suspect]
     Active Substance: LEUCOVORIN CALCIUM
     Dosage: 400 MILLIGRAM/SQ. METER
     Dates: start: 202105
  17. PACLITAXEL [Suspect]
     Active Substance: PACLITAXEL
     Indication: Pancreatic carcinoma metastatic
     Dosage: UNK UNK, Q2W (14 DAYS) (REDUCED INTENSITY)
     Route: 065
     Dates: start: 2020
  18. PACLITAXEL [Suspect]
     Active Substance: PACLITAXEL
     Indication: Ductal adenocarcinoma of pancreas
     Dosage: UNK UNK, Q2W (14 DAYS) (REDUCED INTENSITY)
     Dates: start: 2020
  19. PACLITAXEL [Suspect]
     Active Substance: PACLITAXEL
     Dosage: UNK UNK, Q2W (14 DAYS) (REDUCED INTENSITY)
     Dates: start: 2020
  20. PACLITAXEL [Suspect]
     Active Substance: PACLITAXEL
     Dosage: UNK UNK, Q2W (14 DAYS) (REDUCED INTENSITY)
     Route: 065
     Dates: start: 2020
  21. PACLITAXEL [Suspect]
     Active Substance: PACLITAXEL
     Dosage: UNK (RESTARTED)
     Route: 065
  22. PACLITAXEL [Suspect]
     Active Substance: PACLITAXEL
     Dosage: UNK (RESTARTED)
  23. PACLITAXEL [Suspect]
     Active Substance: PACLITAXEL
     Dosage: UNK (RESTARTED)
  24. PACLITAXEL [Suspect]
     Active Substance: PACLITAXEL
     Dosage: UNK (RESTARTED)
     Route: 065
  25. ONIVYDE [Suspect]
     Active Substance: IRINOTECAN HYDROCHLORIDE
     Indication: Pancreatic carcinoma metastatic
     Dosage: 70 MILLIGRAM/SQ. METER
  26. ONIVYDE [Suspect]
     Active Substance: IRINOTECAN HYDROCHLORIDE
     Dosage: 70 MILLIGRAM/SQ. METER
  27. ONIVYDE [Suspect]
     Active Substance: IRINOTECAN HYDROCHLORIDE
     Dosage: 70 MILLIGRAM/SQ. METER
     Route: 065
  28. ONIVYDE [Suspect]
     Active Substance: IRINOTECAN HYDROCHLORIDE
     Dosage: 70 MILLIGRAM/SQ. METER
     Route: 065
  29. ONIVYDE [Suspect]
     Active Substance: IRINOTECAN HYDROCHLORIDE
     Dosage: 50 MILLIGRAM/SQ. METER
  30. ONIVYDE [Suspect]
     Active Substance: IRINOTECAN HYDROCHLORIDE
     Dosage: 50 MILLIGRAM/SQ. METER
  31. ONIVYDE [Suspect]
     Active Substance: IRINOTECAN HYDROCHLORIDE
     Dosage: 50 MILLIGRAM/SQ. METER
     Route: 065
  32. ONIVYDE [Suspect]
     Active Substance: IRINOTECAN HYDROCHLORIDE
     Dosage: 50 MILLIGRAM/SQ. METER
     Route: 065

REACTIONS (6)
  - Disease progression [Unknown]
  - Aphthous ulcer [Recovering/Resolving]
  - Neurotoxicity [Recovered/Resolved]
  - Febrile neutropenia [Unknown]
  - Neutropenia [Recovered/Resolved]
  - Therapeutic product effect incomplete [Unknown]

NARRATIVE: CASE EVENT DATE: 20210101
